FAERS Safety Report 20918693 (Version 1)
Quarter: 2022Q2

REPORT INFORMATION
  Report Type: Spontaneous
  Country: US (occurrence: None)
  Receive Date: 20220603
  Receipt Date: 20220603
  Transmission Date: 20220721
  Serious: No
  Sender: FDA-Public Use
  Company Number: None

PATIENT
  Sex: Female

DRUGS (2)
  1. DEVICE [Suspect]
     Active Substance: DEVICE
     Indication: Product used for unknown indication
     Dosage: OTHER QUANTITY : 100 GRAMS;?FREQUENCY : DAILY;?
     Route: 042
     Dates: start: 202109
  2. GAMUNEX-C [Suspect]
     Active Substance: HUMAN IMMUNOGLOBULIN G
     Route: 042

REACTIONS (4)
  - Urticaria [None]
  - Infusion related reaction [None]
  - Therapy cessation [None]
  - Drug delivery system malfunction [None]
